FAERS Safety Report 7025370-X (Version None)
Quarter: 2010Q4

REPORT INFORMATION
  Report Type: 
  Country: None (occurrence: None)
  Receive Date: 20101001
  Receipt Date: 20100921
  Transmission Date: 20110411
  Serious: Yes (Hospitalization)
  Sender: FDA-Public Use
  Company Number: PHHY2010FR63558

PATIENT
  Sex: Male

DRUGS (10)
  1. TRILEPTAL [Suspect]
     Dosage: 600 MG, BID
     Route: 048
  2. PRETERAX [Suspect]
     Dosage: 1 DF, QD
     Route: 048
  3. KEPPRA [Suspect]
     Dosage: 1000 MG, BID
     Route: 048
  4. MOPRAL [Suspect]
     Dosage: 20 MG, QD
     Route: 048
  5. MIANSERIN [Suspect]
     Dosage: 30 MG, QD
     Route: 048
  6. TAMSULOSIN [Suspect]
     Dosage: 0.4 MG, QD
     Route: 048
  7. EQUANIL [Suspect]
     Dosage: 400 MG, QD
     Route: 048
  8. HYPNOVEL [Suspect]
     Dosage: UNK
     Route: 042
     Dates: start: 20100707, end: 20100707
  9. PERFALGAN [Suspect]
     Dosage: UNK
     Dates: start: 20100707, end: 20100707
  10. SPASFON [Suspect]
     Dosage: UNK
     Dates: start: 20100707, end: 20100707

REACTIONS (6)
  - FACE OEDEMA [None]
  - LIP OEDEMA [None]
  - MALAISE [None]
  - PALATAL OEDEMA [None]
  - TACHYCARDIA [None]
  - TRANSURETHRAL PROSTATECTOMY [None]
